FAERS Safety Report 19651880 (Version 1)
Quarter: 2021Q3

REPORT INFORMATION
  Report Type: Report from Study
  Country: PK (occurrence: PK)
  Receive Date: 20210803
  Receipt Date: 20210803
  Transmission Date: 20211014
  Serious: Yes (Death)
  Sender: FDA-Public Use
  Company Number: NVSC2021PK174397

PATIENT
  Sex: Male
  Weight: 70 kg

DRUGS (1)
  1. TASIGNA [Suspect]
     Active Substance: NILOTINIB
     Indication: PHILADELPHIA POSITIVE CHRONIC MYELOID LEUKAEMIA
     Dosage: 800 MG (2+2XBD)
     Route: 048
     Dates: start: 20180521

REACTIONS (2)
  - Cardio-respiratory arrest [Fatal]
  - Product use issue [Unknown]
